FAERS Safety Report 4796801-0 (Version None)
Quarter: 2005Q4

REPORT INFORMATION
  Report Type: 
  Country: None (occurrence: None)
  Receive Date: 20051011
  Receipt Date: 20051011
  Transmission Date: 20060501
  Serious: Yes (Other)
  Sender: FDA-Public Use
  Company Number: None

PATIENT
  Age: 69 Year
  Sex: Female
  Weight: 97.5234 kg

DRUGS (1)
  1. VIOXX [Suspect]
     Indication: OSTEOARTHRITIS
     Dosage: 1 TABLET DAILY PO
     Route: 048
     Dates: start: 20030301

REACTIONS (3)
  - CARDIOVASCULAR DISORDER [None]
  - DRY SKIN [None]
  - HAEMORRHAGE SUBCUTANEOUS [None]
